FAERS Safety Report 7371137-2 (Version None)
Quarter: 2011Q1

REPORT INFORMATION
  Report Type: 
  Country: None (occurrence: None)
  Receive Date: 20110322
  Receipt Date: 20110322
  Transmission Date: 20110831
  Serious: Yes (Hospitalization, Other)
  Sender: FDA-Public Use
  Company Number: None

PATIENT
  Age: 18 Year
  Sex: Male
  Weight: 113.3993 kg

DRUGS (1)
  1. FANAPT [Suspect]
     Indication: AFFECTIVE DISORDER
     Dosage: INCREASE FROM 1 TO 6MG DAILY PO
     Route: 048
     Dates: start: 20110316, end: 20110318

REACTIONS (8)
  - TACHYCARDIA [None]
  - CARDIAC ENZYMES INCREASED [None]
  - MEDICATION ERROR [None]
  - HYPERTENSION [None]
  - SYNCOPE [None]
  - CONFUSIONAL STATE [None]
  - OVERDOSE [None]
  - DEHYDRATION [None]
